FAERS Safety Report 24378696 (Version 1)
Quarter: 2024Q3

REPORT INFORMATION
  Report Type: Report from Study
  Country: DE (occurrence: DE)
  Receive Date: 20240930
  Receipt Date: 20240930
  Transmission Date: 20241017
  Serious: Yes (Other)
  Sender: ROCHE
  Company Number: DE-ROCHE-10000084104

PATIENT

DRUGS (12)
  1. VEMURAFENIB [Suspect]
     Active Substance: VEMURAFENIB
     Indication: Malignant melanoma of sites other than skin
     Route: 065
  2. COBIMETINIB [Suspect]
     Active Substance: COBIMETINIB
     Indication: Malignant melanoma of sites other than skin
     Route: 065
  3. DACARBAZINE [Suspect]
     Active Substance: DACARBAZINE
     Indication: Malignant melanoma of sites other than skin
     Route: 065
  4. DABRAFENIB [Suspect]
     Active Substance: DABRAFENIB
     Indication: Malignant melanoma of sites other than skin
     Route: 065
  5. TRAMETINIB [Suspect]
     Active Substance: TRAMETINIB
     Indication: Malignant melanoma of sites other than skin
     Route: 065
  6. ENCORAFENIB [Suspect]
     Active Substance: ENCORAFENIB
     Indication: Malignant melanoma of sites other than skin
     Route: 065
  7. BINIMETINIB [Suspect]
     Active Substance: BINIMETINIB
     Indication: Malignant melanoma of sites other than skin
     Route: 065
  8. IMATINIB [Suspect]
     Active Substance: IMATINIB
     Indication: Malignant melanoma of sites other than skin
     Route: 065
  9. IPILIMUMAB [Suspect]
     Active Substance: IPILIMUMAB
     Indication: Malignant melanoma of sites other than skin
     Route: 065
  10. NIVOLUMAB [Suspect]
     Active Substance: NIVOLUMAB
     Indication: Malignant melanoma of sites other than skin
     Route: 065
  11. RELATLIMAB [Suspect]
     Active Substance: RELATLIMAB
     Indication: Malignant melanoma of sites other than skin
     Route: 065
  12. PEMBROLIZUMAB [Suspect]
     Active Substance: PEMBROLIZUMAB
     Indication: Malignant melanoma of sites other than skin
     Route: 065

REACTIONS (25)
  - Alanine aminotransferase increased [Unknown]
  - Diarrhoea [Unknown]
  - Lipase increased [Unknown]
  - Blood alkaline phosphatase increased [Unknown]
  - Alopecia [Unknown]
  - Anaemia [Unknown]
  - Arthritis [Unknown]
  - Blood creatine phosphokinase increased [Unknown]
  - Blood creatinine increased [Unknown]
  - Facial paralysis [Unknown]
  - Pyrexia [Unknown]
  - Hyperglycaemia [Unknown]
  - Hyperparathyroidism [Unknown]
  - Hyperthyroidism [Unknown]
  - Hypophysitis [Unknown]
  - Myocarditis [Unknown]
  - Nausea [Unknown]
  - Peripheral motor neuropathy [Unknown]
  - Platelet count decreased [Unknown]
  - Pneumonitis [Unknown]
  - Rash maculo-papular [Unknown]
  - Amylase increased [Unknown]
  - Skin hypopigmentation [Unknown]
  - Uveitis [Unknown]
  - White blood cell count decreased [Unknown]
